FAERS Safety Report 7960080-3 (Version None)
Quarter: 2011Q4

REPORT INFORMATION
  Report Type: 
  Country: None (occurrence: None)
  Receive Date: 20111206
  Receipt Date: 20111130
  Transmission Date: 20120403
  Serious: Yes (Other)
  Sender: FDA-Public Use
  Company Number: CHPA2011US017198

PATIENT
  Age: 25 Year
  Sex: Female

DRUGS (3)
  1. TRANSDERM SCOP [Suspect]
     Indication: VERTIGO
     Dosage: 1 DF, Q72H
     Route: 062
     Dates: start: 20110501, end: 20111127
  2. MULTI-VITAMINS [Concomitant]
     Dosage: UNK DF, UNK
  3. TRANSDERM SCOP [Suspect]
     Dosage: 1 DF, Q72H
     Route: 062
     Dates: start: 20111201

REACTIONS (4)
  - OVARIAN CYST [None]
  - OFF LABEL USE [None]
  - VOMITING [None]
  - METRORRHAGIA [None]
